FAERS Safety Report 13176658 (Version 1)
Quarter: 2017Q1

REPORT INFORMATION
  Report Type: Report from Study
  Country: None (occurrence: US)
  Receive Date: 20170201
  Receipt Date: 20170201
  Transmission Date: 20170428
  Serious: Yes (Other)
  Sender: FDA-Public Use
  Company Number: US-ABBVIE-17K-163-1839117-00

PATIENT
  Sex: Female
  Weight: 47.22 kg

DRUGS (1)
  1. HUMIRA [Suspect]
     Active Substance: ADALIMUMAB
     Indication: CROHN^S DISEASE
     Route: 058
     Dates: start: 201406, end: 201612

REACTIONS (6)
  - Productive cough [Not Recovered/Not Resolved]
  - Bronchiectasis [Recovered/Resolved]
  - Mycobacterium avium complex infection [Recovered/Resolved]
  - Crohn^s disease [Unknown]
  - Dyspnoea [Not Recovered/Not Resolved]
  - Chest pain [Not Recovered/Not Resolved]

NARRATIVE: CASE EVENT DATE: 2016
